FAERS Safety Report 9158068 (Version 3)
Quarter: 2013Q2

REPORT INFORMATION
  Report Type: Spontaneous
  Country: US (occurrence: US)
  Receive Date: 20130312
  Receipt Date: 20130423
  Transmission Date: 20140414
  Serious: Yes (Hospitalization)
  Sender: FDA-Public Use
  Company Number: US-009507513-1303USA005202

PATIENT
  Age: 72 Year
  Sex: Male

DRUGS (1)
  1. ASMANEX TWISTHALER [Suspect]
     Indication: BRONCHOPNEUMONIA
     Dosage: 220 MICROGRAM, UNK
     Route: 055
     Dates: start: 20130301

REACTIONS (5)
  - Haemoptysis [Recovered/Resolved]
  - Pneumonia [Recovered/Resolved]
  - Product quality issue [Unknown]
  - Drug dose omission [Unknown]
  - Off label use [Unknown]
